FAERS Safety Report 8819855 (Version 2)
Quarter: 2012Q4

REPORT INFORMATION
  Report Type: 
  Country: FR (occurrence: FR)
  Receive Date: 20121001
  Receipt Date: 20121116
  Transmission Date: 20130627
  Serious: No
  Sender: FDA-Public Use
  Company Number: FR-JNJFOC-20120909931

PATIENT
  Age: 83 None
  Sex: Male

DRUGS (1)
  1. DUROGESIC [Suspect]
     Indication: PAIN
     Route: 062
     Dates: start: 20120718

REACTIONS (4)
  - Wrong technique in drug usage process [Unknown]
  - Drug prescribing error [Unknown]
  - Drug prescribing error [Unknown]
  - Somnolence [Recovered/Resolved]
